FAERS Safety Report 5382488-5 (Version None)
Quarter: 2007Q3

REPORT INFORMATION
  Report Type: 
  Country: None (occurrence: None)
  Receive Date: 20070710
  Receipt Date: 20070705
  Transmission Date: 20080115
  Serious: Yes (Hospitalization)
  Sender: FDA-Public Use
  Company Number: FRWYE974805JUL07

PATIENT
  Sex: Male

DRUGS (2)
  1. RHINADVIL [Suspect]
     Indication: PYREXIA
     Dosage: ONE INTAKE OF 2 TABLETS
     Route: 048
     Dates: start: 20070505, end: 20070505
  2. AMOXICILLIN TRIHYDRATE [Suspect]
     Indication: EAR INFECTION
     Dosage: 2 G TOTAL DAILY
     Route: 048
     Dates: start: 20070427, end: 20070505

REACTIONS (6)
  - CONJUNCTIVITIS [None]
  - MUCOSAL INFLAMMATION [None]
  - RASH GENERALISED [None]
  - RASH MACULO-PAPULAR [None]
  - RASH PRURITIC [None]
  - TOXIC SKIN ERUPTION [None]
